FAERS Safety Report 4616182-2 (Version None)
Quarter: 2005Q1

REPORT INFORMATION
  Report Type: 
  Country: None (occurrence: None)
  Receive Date: 20050317
  Receipt Date: 20050301
  Transmission Date: 20050727
  Serious: Yes (Other)
  Sender: FDA-Public Use
  Company Number: 2005-DE-00817GD

PATIENT
  Age: 66 Year
  Sex: Male

DRUGS (1)
  1. DIPYRIDAMOLE [Suspect]
     Indication: THROMBOSIS PROPHYLAXIS
     Dosage: 75 MG PO
     Route: 048

REACTIONS (1)
  - INTRACARDIAC THROMBUS [None]
